FAERS Safety Report 9510654 (Version 1)
Quarter: 2013Q3

REPORT INFORMATION
  Report Type: Spontaneous
  Country: GB (occurrence: GB)
  Receive Date: 20130909
  Receipt Date: 20130909
  Transmission Date: 20140515
  Serious: Yes (Hospitalization, Disabling, Other)
  Sender: FDA-Public Use
  Company Number: GB-WATSON-2013-15850

PATIENT
  Sex: 0

DRUGS (15)
  1. ANASTROZOLE (UNKNOWN) [Suspect]
     Indication: BREAST CANCER METASTATIC
     Dosage: 1 MG, UNKNOWN
     Route: 048
     Dates: start: 20130520
  2. CITALOPRAM [Concomitant]
  3. METFORMIN [Concomitant]
  4. GLICLAZIDE [Concomitant]
  5. LEVEMIR [Concomitant]
  6. LISINOPRIL [Concomitant]
  7. BUMETANIDE [Concomitant]
  8. FERROUS FUMARATE [Concomitant]
  9. TRAMADOL [Concomitant]
  10. SEVREDOL [Concomitant]
  11. CYCLIZINE [Concomitant]
  12. OMEPRAZOLE [Concomitant]
  13. ZOPICLONE [Concomitant]
  14. CO-DANTHRAMER [Concomitant]
  15. MEZOLAR MATRIX [Concomitant]

REACTIONS (2)
  - Mania [Unknown]
  - Psychotic disorder [Unknown]
